FAERS Safety Report 24604426 (Version 1)
Quarter: 2024Q4

REPORT INFORMATION
  Report Type: Spontaneous
  Country: US (occurrence: US)
  Receive Date: 20241111
  Receipt Date: 20241111
  Transmission Date: 20250115
  Serious: Yes (Life-Threatening, Hospitalization)
  Sender: DR REDDYS
  Company Number: None

PATIENT
  Age: 49 Year
  Sex: Male

DRUGS (8)
  1. HEPARIN [Suspect]
     Active Substance: HEPARIN SODIUM
     Indication: Atrial fibrillation
  2. HEPARIN [Suspect]
     Active Substance: HEPARIN SODIUM
     Indication: Deep vein thrombosis
  3. COUMADIN [Suspect]
     Active Substance: WARFARIN SODIUM
     Indication: Atrial fibrillation
  4. COUMADIN [Suspect]
     Active Substance: WARFARIN SODIUM
     Indication: Deep vein thrombosis
  5. AMIODARONE [Concomitant]
     Active Substance: AMIODARONE
     Indication: Atrial fibrillation
     Dosage: LOAD AND DRIP WAS GIVEN ONCE; 150 MG INTRAVENOUS [IV] WAS GIVEN ONCE?DRIP
     Route: 042
  6. AMIODARONE [Concomitant]
     Active Substance: AMIODARONE
     Dosage: 1 MG/MINUTE IV AMIODARONE CONTINUOUS INFUSION
     Route: 042
  7. NOREPINEPHRINE BITARTRATE [Concomitant]
     Active Substance: NOREPINEPHRINE BITARTRATE
     Indication: Shock
  8. VASOPRESSIN [Concomitant]
     Active Substance: VASOPRESSIN
     Indication: Shock

REACTIONS (2)
  - Rectal haemorrhage [Recovering/Resolving]
  - Pancreatitis haemorrhagic [Recovered/Resolved]
